FAERS Safety Report 13259749 (Version 5)
Quarter: 2018Q1

REPORT INFORMATION
  Report Type: Report from Study
  Country: JP (occurrence: JP)
  Receive Date: 20170222
  Receipt Date: 20180301
  Transmission Date: 20180508
  Serious: Yes (Death, Life-Threatening, Hospitalization, Other)
  Sender: FDA-Public Use
  Company Number: JP-PFIZER INC-2016339229

PATIENT
  Age: 64 Year
  Sex: Male
  Weight: 82 kg

DRUGS (11)
  1. PREDNIN [Concomitant]
     Active Substance: PREDNISOLONE SODIUM PHOSPHATE
     Indication: RHEUMATOID ARTHRITIS
     Dosage: 5 MG, DAILY
     Route: 048
     Dates: end: 20160313
  2. PREDNIN [Concomitant]
     Active Substance: PREDNISOLONE SODIUM PHOSPHATE
     Dosage: 2.5 MG, DAILY
     Route: 048
     Dates: start: 20160822, end: 20170205
  3. PREDNIN [Concomitant]
     Active Substance: PREDNISOLONE SODIUM PHOSPHATE
     Dosage: 2.5 MG, DAILY
     Route: 048
     Dates: start: 20160314, end: 20160705
  4. PREDNIN [Concomitant]
     Active Substance: PREDNISOLONE SODIUM PHOSPHATE
     Dosage: 5 MG, DAILY
     Route: 048
     Dates: start: 20160706, end: 20160821
  5. PREDNIN [Concomitant]
     Active Substance: PREDNISOLONE SODIUM PHOSPHATE
     Dosage: 30 MG, DAILY
     Route: 048
     Dates: start: 20170206, end: 20170208
  6. AZULFIDINE [Concomitant]
     Active Substance: SULFASALAZINE
     Indication: RHEUMATOID ARTHRITIS
     Dosage: UNK
     Route: 048
     Dates: end: 20160825
  7. PREDNIN [Concomitant]
     Active Substance: PREDNISOLONE SODIUM PHOSPHATE
     Dosage: 20 MG, DAILY
     Route: 048
     Dates: start: 20170209, end: 20170212
  8. VOLTAREN [Concomitant]
     Active Substance: DICLOFENAC SODIUM
     Indication: RHEUMATOID ARTHRITIS
     Route: 048
  9. XELJANZ [Suspect]
     Active Substance: TOFACITINIB CITRATE
     Indication: RHEUMATOID ARTHRITIS
     Dosage: 5 MG, 2X/DAY
     Route: 048
     Dates: start: 20160215, end: 20160510
  10. PREDNIN [Concomitant]
     Active Substance: PREDNISOLONE SODIUM PHOSPHATE
     Dosage: 15 MG, DAILY
     Route: 048
     Dates: start: 20170213
  11. EDIROL [Concomitant]
     Active Substance: ELDECALCITOL
     Indication: RHEUMATOID ARTHRITIS
     Route: 048

REACTIONS (2)
  - Small cell lung cancer [Fatal]
  - Febrile neutropenia [Unknown]

NARRATIVE: CASE EVENT DATE: 20160706
